FAERS Safety Report 7637796-1 (Version None)
Quarter: 2011Q3

REPORT INFORMATION
  Report Type: 
  Country: None (occurrence: None)
  Receive Date: 20110727
  Receipt Date: 20110721
  Transmission Date: 20111222
  Serious: Yes (Death, Other)
  Sender: FDA-Public Use
  Company Number: US-CELGENEUS-163-21880-11072525

PATIENT
  Age: 55 Year
  Sex: Female

DRUGS (6)
  1. LORAZEPAM [Concomitant]
     Route: 065
  2. REVLIMID [Suspect]
     Indication: MULTIPLE MYELOMA
     Dosage: 15 MILLIGRAM
     Route: 048
     Dates: start: 20101201
  3. FUROSEMIDE [Concomitant]
     Route: 065
  4. KLOR-CON [Concomitant]
     Route: 065
  5. REVLIMID [Suspect]
     Indication: AMYLOIDOSIS
     Dosage: 25 MILLIGRAM
     Route: 048
     Dates: start: 20110101, end: 20110301
  6. DEXAMETHASONE [Concomitant]
     Route: 065

REACTIONS (2)
  - DEATH [None]
  - CARDIAC FAILURE [None]
